FAERS Safety Report 17881499 (Version 1)
Quarter: 2020Q2

REPORT INFORMATION
  Report Type: Spontaneous
  Country: US (occurrence: US)
  Receive Date: 20200610
  Receipt Date: 20200610
  Transmission Date: 20200714
  Serious: No
  Sender: FDA-Public Use
  Company Number: US-COLLEGIUM PHARMACEUTICAL, INC.-2019CGM00218

PATIENT
  Sex: Female

DRUGS (2)
  1. XTAMPZA ER [Suspect]
     Active Substance: OXYCODONE
     Indication: JOINT CAPSULE RUPTURE
     Dosage: 9 MG, 2X/DAY (EVERY 12 HOURS)
     Dates: start: 20190501, end: 201907
  2. XTAMPZA ER [Suspect]
     Active Substance: OXYCODONE
     Indication: JOINT CAPSULE RUPTURE
     Dosage: UNK
     Dates: start: 201907

REACTIONS (2)
  - Pain [Unknown]
  - Drug ineffective [Unknown]

NARRATIVE: CASE EVENT DATE: 2019
